FAERS Safety Report 6644485-9 (Version None)
Quarter: 2010Q1

REPORT INFORMATION
  Report Type: 
  Country: None (occurrence: None)
  Receive Date: 20100304
  Receipt Date: 20090806
  Transmission Date: 20100710
  Serious: Yes (Hospitalization)
  Sender: FDA-Public Use
  Company Number: US-003254

PATIENT
  Age: 79 Year
  Sex: Male

DRUGS (2)
  1. ISOVUE-300 [Suspect]
     Indication: CATHETERISATION CARDIAC
     Dosage: INTRA-ARTERIAL
     Route: 013
     Dates: start: 20090728, end: 20090728
  2. ISOVUE-300 [Suspect]
     Indication: CORONARY ARTERY DISEASE
     Dosage: INTRA-ARTERIAL
     Route: 013
     Dates: start: 20090728, end: 20090728

REACTIONS (7)
  - COUGH [None]
  - DYSPNOEA [None]
  - FLUSHING [None]
  - HYPOTENSION [None]
  - RASH ERYTHEMATOUS [None]
  - TACHYCARDIA [None]
  - URINARY RETENTION [None]
